FAERS Safety Report 5767991-8 (Version None)
Quarter: 2008Q2

REPORT INFORMATION
  Report Type: 
  Country: None (occurrence: None)
  Receive Date: 20080609
  Receipt Date: 20080604
  Transmission Date: 20081010
  Serious: Yes (Hospitalization)
  Sender: FDA-Public Use
  Company Number: E2020-02726-SPO-JP

PATIENT
  Age: 79 Year
  Sex: Female

DRUGS (6)
  1. ARICEPT [Suspect]
     Indication: DEMENTIA ALZHEIMER'S TYPE
     Dosage: 5 MG, 1 IN 1 D, ORAL : 7.5 MG, 1 IN 1 D, ORAL : 10 MG, 1 IN 1 D, ORAL
     Route: 048
     Dates: start: 20031101, end: 20080109
  2. ARICEPT [Suspect]
     Indication: DEMENTIA ALZHEIMER'S TYPE
     Dosage: 5 MG, 1 IN 1 D, ORAL : 7.5 MG, 1 IN 1 D, ORAL : 10 MG, 1 IN 1 D, ORAL
     Route: 048
     Dates: start: 20080110, end: 20080206
  3. ARICEPT [Suspect]
     Indication: DEMENTIA ALZHEIMER'S TYPE
     Dosage: 5 MG, 1 IN 1 D, ORAL : 7.5 MG, 1 IN 1 D, ORAL : 10 MG, 1 IN 1 D, ORAL
     Route: 048
     Dates: start: 20080207, end: 20080501
  4. LOCHOL (FLUVASTATIN SODIUM) [Concomitant]
  5. LIPITOR [Concomitant]
  6. SELBEX (TEPRENONE) [Concomitant]

REACTIONS (5)
  - DECREASED ACTIVITY [None]
  - DEMENTIA [None]
  - FALL [None]
  - TORTICOLLIS [None]
  - WRIST FRACTURE [None]
